FAERS Safety Report 7553719-8 (Version None)
Quarter: 2011Q2

REPORT INFORMATION
  Report Type: 
  Country: None (occurrence: None)
  Receive Date: 20110614
  Receipt Date: 20110614
  Transmission Date: 20111010
  Serious: Yes (Life-Threatening, Other)
  Sender: FDA-Public Use
  Company Number: None

PATIENT
  Age: 26 Year
  Sex: Female
  Weight: 65.7716 kg

DRUGS (1)
  1. HEPARIN [Suspect]
     Indication: COAGULOPATHY
     Dosage: INJECTED TWICE DAILY OTHER
     Dates: start: 20110605, end: 20110607

REACTIONS (2)
  - BLOOD URINE PRESENT [None]
  - PRODUCT QUALITY ISSUE [None]
